FAERS Safety Report 5689725-8 (Version None)
Quarter: 2008Q1

REPORT INFORMATION
  Report Type: 
  Country: None (occurrence: None)
  Receive Date: 20080328
  Receipt Date: 20080325
  Transmission Date: 20080703
  Serious: Yes (Death, Other)
  Sender: FDA-Public Use
  Company Number: OMPQ-NO-0803L-0206

PATIENT
  Age: 47 Year
  Sex: Male
  Weight: 67 kg

DRUGS (4)
  1. OMNIPAQUE 240 [Suspect]
     Indication: HEADACHE
     Dosage: NR, SINGLE DOSE, SINGLE DOSE
  2. OMNIPAQUE 240 [Suspect]
     Indication: LOSS OF CONSCIOUSNESS
     Dosage: NR, SINGLE DOSE, SINGLE DOSE
  3. METFORMIN HCL [Concomitant]
  4. GLYBURIDE [Concomitant]

REACTIONS (9)
  - BLOOD GLUCOSE INCREASED [None]
  - CARDIAC ARREST [None]
  - HAEMODIALYSIS [None]
  - HYPOTENSION [None]
  - IRRITABILITY [None]
  - METABOLIC ACIDOSIS [None]
  - RENAL IMPAIRMENT [None]
  - RESPIRATORY DISTRESS [None]
  - TACHYPNOEA [None]
